FAERS Safety Report 11755922 (Version 1)
Quarter: 2015Q4

REPORT INFORMATION
  Report Type: Spontaneous
  Country: US (occurrence: US)
  Receive Date: 20151119
  Receipt Date: 20151119
  Transmission Date: 20160304
  Serious: No
  Sender: FDA-Public Use
  Company Number: US-ALLERGAN-1502782US

PATIENT
  Sex: Female
  Weight: 63.49 kg

DRUGS (2)
  1. ALPHAGAN P [Suspect]
     Active Substance: BRIMONIDINE TARTRATE
     Indication: INTRAOCULAR PRESSURE TEST
     Dosage: UNK, BID
     Route: 047
     Dates: start: 2014
  2. INSULIN INJECTION [Concomitant]
     Active Substance: INSULIN NOS
     Dosage: UNK
     Route: 058

REACTIONS (3)
  - Intraocular pressure increased [Not Recovered/Not Resolved]
  - Eye swelling [Not Recovered/Not Resolved]
  - Inappropriate schedule of drug administration [Unknown]

NARRATIVE: CASE EVENT DATE: 2014
